FAERS Safety Report 10969270 (Version 1)
Quarter: 2015Q1

REPORT INFORMATION
  Report Type: Spontaneous
  Country: US (occurrence: None)
  Receive Date: 20150226
  Receipt Date: 20150226
  Transmission Date: 20150721
  Serious: No
  Sender: FDA-Public Use
  Company Number: TPA2010A01621

PATIENT
  Age: 65 Year
  Sex: Male
  Weight: 104.33 kg

DRUGS (7)
  1. GENERIC WELLBUTRIN (BUPROPION HYDROCHLORIDE) [Concomitant]
  2. ADDERALL (DEXAMFETAMINE SULFATE AMFETAMINE SULFATE DEXAMFETAMINE SACCHARATE AMFETAMINE ASPARTATE) [Concomitant]
  3. EYE DROPS (TETRYZOLINE HYDROCHLORIDE) [Concomitant]
  4. ULORIC [Suspect]
     Active Substance: FEBUXOSTAT
     Indication: GOUT
     Route: 048
     Dates: start: 200911, end: 20100326
  5. OXYBUTYNIN [Concomitant]
     Active Substance: OXYBUTYNIN
  6. VITAMINS [Concomitant]
     Active Substance: VITAMINS
  7. ANTACID [Concomitant]
     Active Substance: ALUMINUM HYDROXIDE\CALCIUM CARBONATE\DIMETHICONE\MAGNESIUM HYDROXIDE

REACTIONS (1)
  - Gout [None]
